FAERS Safety Report 4511897-9 (Version None)
Quarter: 2004Q4

REPORT INFORMATION
  Report Type: 
  Country: None (occurrence: None)
  Receive Date: 20041123
  Receipt Date: 20041110
  Transmission Date: 20050328
  Serious: Yes (Hospitalization)
  Sender: FDA-Public Use
  Company Number: 2004-00813

PATIENT
  Age: 58 Year
  Sex: Female
  Weight: 61.7 kg

DRUGS (1)
  1. VELCADE [Suspect]
     Indication: MULTIPLE MYELOMA
     Dosage: INTRAVENOUS
     Route: 042
     Dates: start: 20040301, end: 20041026

REACTIONS (6)
  - ABDOMINAL DISTENSION [None]
  - DIVERTICULITIS [None]
  - KIDNEY INFECTION [None]
  - PROTEIN TOTAL INCREASED [None]
  - SINUSITIS [None]
  - WEIGHT INCREASED [None]
